APPROVED DRUG PRODUCT: OXAPROZIN
Active Ingredient: OXAPROZIN
Strength: 600MG
Dosage Form/Route: TABLET;ORAL
Application: A208633 | Product #001 | TE Code: AB
Applicant: AMNEAL PHARMACEUTICALS CO GMBH
Approved: May 4, 2017 | RLD: No | RS: No | Type: RX